FAERS Safety Report 20839818 (Version 2)
Quarter: 2022Q2

REPORT INFORMATION
  Report Type: Spontaneous
  Country: US (occurrence: US)
  Receive Date: 20220517
  Receipt Date: 20220610
  Transmission Date: 20220720
  Serious: No
  Sender: FDA-Public Use
  Company Number: US-PFIZER INC-202200715323

PATIENT
  Age: 51 Year
  Sex: Female
  Weight: 90.703 kg

DRUGS (3)
  1. PAXLOVID [Suspect]
     Active Substance: NIRMATRELVIR\RITONAVIR
     Indication: COVID-19 treatment
     Dosage: UNK
     Dates: start: 20220506, end: 20220511
  2. ALKA SELTZER PLUS COLD MEDICINE EVT [Concomitant]
     Dosage: OFF AND ON
     Dates: start: 20220504, end: 20220511
  3. THERAFLU ALERGIA [Concomitant]
     Dosage: TOOK 3 TIMES
     Dates: start: 20220504, end: 20220511

REACTIONS (2)
  - COVID-19 [Not Recovered/Not Resolved]
  - Disease recurrence [Not Recovered/Not Resolved]

NARRATIVE: CASE EVENT DATE: 20220514
